FAERS Safety Report 5049825-2 (Version None)
Quarter: 2006Q3

REPORT INFORMATION
  Report Type: 
  Country: None (occurrence: None)
  Receive Date: 20060706
  Receipt Date: 20060703
  Transmission Date: 20061208
  Serious: Yes (Hospitalization, Other)
  Sender: FDA-Public Use
  Company Number: USA-2006-0024167

PATIENT
  Age: 61 Year
  Sex: Female

DRUGS (3)
  1. OXYCODONE HCL [Suspect]
     Indication: PREOPERATIVE CARE
     Dosage: SEE TEXT
  2. OXYCODONE HCL [Suspect]
     Indication: PAIN
     Dosage: SEE TEXT
  3. HYDROMORPHONE HCL [Suspect]
     Indication: BREAKTHROUGH PAIN
     Dosage: 4 MG, TID PRN,

REACTIONS (26)
  - ACUTE RESPIRATORY DISTRESS SYNDROME [None]
  - ANXIETY [None]
  - BACK PAIN [None]
  - BLOOD PRESSURE INCREASED [None]
  - BRAIN NATRIURETIC PEPTIDE INCREASED [None]
  - CARDIAC DISORDER [None]
  - CHEST PAIN [None]
  - DRUG DEPENDENCE [None]
  - DRUG DOSE OMISSION [None]
  - DRUG WITHDRAWAL SYNDROME [None]
  - EJECTION FRACTION DECREASED [None]
  - ELECTROCARDIOGRAM ST SEGMENT ELEVATION [None]
  - HYPERHIDROSIS [None]
  - HYPOTENSION [None]
  - LUNG INFILTRATION [None]
  - MITRAL VALVE INCOMPETENCE [None]
  - NAUSEA [None]
  - PALLOR [None]
  - PNEUMONIA [None]
  - PULMONARY OEDEMA [None]
  - RALES [None]
  - RESPIRATORY DISTRESS [None]
  - RESPIRATORY FAILURE [None]
  - TACHYCARDIA [None]
  - TROPONIN T INCREASED [None]
  - VENTRICULAR HYPOKINESIA [None]
